FAERS Safety Report 4844493-4 (Version None)
Quarter: 2005Q4

REPORT INFORMATION
  Report Type: 
  Country: None (occurrence: None)
  Receive Date: 20051203
  Receipt Date: 20051124
  Transmission Date: 20060501
  Serious: Yes (Death, Other)
  Sender: FDA-Public Use
  Company Number: PHBS2005GB17363

PATIENT
  Age: 79 Year
  Sex: Female

DRUGS (1)
  1. ZOMETA [Suspect]
     Indication: METASTASES TO BONE
     Dosage: 4 MG, QMO
     Route: 042
     Dates: start: 20020101

REACTIONS (13)
  - BONE DISORDER [None]
  - DENTAL OPERATION [None]
  - FEMUR FRACTURE [None]
  - GINGIVAL DISORDER [None]
  - METASTATIC NEOPLASM [None]
  - OSTEONECROSIS [None]
  - PAIN IN JAW [None]
  - PATHOLOGICAL FRACTURE [None]
  - PLASTIC SURGERY [None]
  - PURULENT DISCHARGE [None]
  - TOOTH DISORDER [None]
  - TOOTH EXTRACTION [None]
  - TOOTHACHE [None]
